FAERS Safety Report 6737879-4 (Version None)
Quarter: 2010Q2

REPORT INFORMATION
  Report Type: 
  Country: None (occurrence: None)
  Receive Date: 20100524
  Receipt Date: 20100517
  Transmission Date: 20101027
  Serious: Yes (Hospitalization, Other)
  Sender: FDA-Public Use
  Company Number: GB-ROCHE-564897

PATIENT
  Sex: Male
  Weight: 100 kg

DRUGS (4)
  1. CAPECITABINE [Suspect]
     Indication: COLON CANCER
     Dosage: AS PER PROTOCOL 1250 MG/M2 TWICE DAILY FOR 14 DAYS, LAST DOSE 9 MAY 08.THERAINTERRUPTED
     Route: 048
     Dates: start: 20080425
  2. DOMPERIDONE [Suspect]
     Indication: ANTIEMETIC SUPPORTIVE CARE
     Dosage: MOST RECENT DOSE ON 13 MAY 2008
     Route: 048
  3. OMEPRAZOLE [Suspect]
     Indication: ANTACID THERAPY
     Route: 048
  4. AMLODIPINE [Suspect]
     Indication: HYPERTENSION
     Route: 048

REACTIONS (2)
  - DIARRHOEA [None]
  - MUCOSAL INFLAMMATION [None]
